FAERS Safety Report 17255020 (Version 1)
Quarter: 2020Q1

REPORT INFORMATION
  Report Type: Spontaneous
  Country: CN (occurrence: CN)
  Receive Date: 20200109
  Receipt Date: 20200109
  Transmission Date: 20200409
  Serious: Yes (Hospitalization, Disabling)
  Sender: FDA-Public Use
  Company Number: CN-BAXTER-2020BAX000183

PATIENT
  Age: 66 Year
  Sex: Female
  Weight: 43.5 kg

DRUGS (12)
  1. 20% MANNITOL INJECTION [Suspect]
     Active Substance: MANNITOL
     Indication: DEHYDRATION
     Dosage: Q8H
     Route: 041
     Dates: start: 20191122
  2. FUROSEMIDE. [Suspect]
     Active Substance: FUROSEMIDE
     Indication: DIURETIC THERAPY
  3. FUROSEMIDE. [Suspect]
     Active Substance: FUROSEMIDE
     Indication: CEREBELLAR INFARCTION
     Dosage: ONCE (FOR 3 DAYS)
     Route: 042
     Dates: start: 20191111
  4. GLYCEROL FRUCTOSE AND SODIUM CHLORIDE [Suspect]
     Active Substance: FRUCTOSE\GLYCERIN\SODIUM CHLORIDE
     Indication: DEHYDRATION
     Dosage: Q12H (TWICE A DAY)
     Route: 041
     Dates: start: 20191123, end: 20191126
  5. GLYCEROL FRUCTOSE AND SODIUM CHLORIDE [Suspect]
     Active Substance: FRUCTOSE\GLYCERIN\SODIUM CHLORIDE
     Indication: CEREBELLAR INFARCTION
  6. FUROSEMIDE. [Suspect]
     Active Substance: FUROSEMIDE
     Indication: CEREBELLAR INFARCTION
     Dosage: TABLET
     Route: 048
     Dates: start: 20191115, end: 20191125
  7. 20% MANNITOL INJECTION [Suspect]
     Active Substance: MANNITOL
     Indication: CEREBELLAR INFARCTION
  8. 20% MANNITOL INJECTION [Suspect]
     Active Substance: MANNITOL
     Indication: REDUCTION OF INCREASED INTRACRANIAL PRESSURE
     Dosage: Q6H (FOUR TIMES A DAY)
     Route: 041
     Dates: start: 20191123, end: 20191125
  9. SPIRONOLACTONE. [Suspect]
     Active Substance: SPIRONOLACTONE
     Indication: CEREBELLAR INFARCTION
     Dosage: TABLET (ONCE)
     Route: 048
     Dates: start: 20191115, end: 20191125
  10. SPIRONOLACTONE. [Suspect]
     Active Substance: SPIRONOLACTONE
     Indication: DIURETIC THERAPY
  11. FUROSEMIDE. [Suspect]
     Active Substance: FUROSEMIDE
     Indication: DIURETIC THERAPY
     Route: 042
     Dates: start: 20191125, end: 20191126
  12. GLYCEROL FRUCTOSE AND SODIUM CHLORIDE [Suspect]
     Active Substance: FRUCTOSE\GLYCERIN\SODIUM CHLORIDE
     Indication: REDUCTION OF INCREASED INTRACRANIAL PRESSURE

REACTIONS (2)
  - Acute kidney injury [Recovering/Resolving]
  - Hyponatraemia [Recovering/Resolving]

NARRATIVE: CASE EVENT DATE: 20191125
